FAERS Safety Report 20607492 (Version 1)
Quarter: 2022Q1

REPORT INFORMATION
  Report Type: Spontaneous
  Country: US (occurrence: None)
  Receive Date: 20220316
  Receipt Date: 20220316
  Transmission Date: 20220423
  Serious: No
  Sender: FDA-Public Use
  Company Number: None

PATIENT
  Age: 8 Year
  Sex: Male
  Weight: 36 kg

DRUGS (8)
  1. LEVOCETIRIZINE [Suspect]
     Active Substance: LEVOCETIRIZINE
     Indication: Seasonal allergy
     Dosage: FREQUENCY : AT BEDTIME;?
     Route: 048
     Dates: start: 20211102, end: 20220115
  2. ABILIFY [Concomitant]
     Active Substance: ARIPIPRAZOLE
  3. CONCERTA [Concomitant]
     Active Substance: METHYLPHENIDATE HYDROCHLORIDE
  4. GUANFACINE [Concomitant]
     Active Substance: GUANFACINE
  5. HYDROXYZINE [Concomitant]
     Active Substance: HYDROXYZINE HYDROCHLORIDE
  6. Clonidine 0.05mg [Concomitant]
  7. LORATADINE [Concomitant]
     Active Substance: LORATADINE
  8. Ferrous Sulfate 27mg [Concomitant]

REACTIONS (2)
  - Enuresis [None]
  - Memory impairment [None]

NARRATIVE: CASE EVENT DATE: 20220115
